FAERS Safety Report 26115658 (Version 2)
Quarter: 2025Q4

REPORT INFORMATION
  Report Type: Spontaneous
  Country: US (occurrence: US)
  Receive Date: 20251203
  Receipt Date: 20251224
  Transmission Date: 20260117
  Serious: No
  Sender: KARYOPHARM THERAPEUTICS
  Company Number: US-KARYOPHARM-2025KPT101007

PATIENT

DRUGS (12)
  1. SELINEXOR [Suspect]
     Active Substance: SELINEXOR
     Indication: Brain neoplasm malignant
     Dosage: 40 MG WEEKLY
     Route: 048
     Dates: start: 20251202, end: 20251204
  2. AMLODIPINE [Concomitant]
     Active Substance: AMLODIPINE BESYLATE
  3. ASPIRIN [Concomitant]
     Active Substance: ASPIRIN
  4. BACTRIM [Concomitant]
     Active Substance: SULFAMETHOXAZOLE\TRIMETHOPRIM
  5. DEXAMETHASONE [Concomitant]
     Active Substance: DEXAMETHASONE
  6. LACOSAMIDE [Concomitant]
     Active Substance: LACOSAMIDE
  7. LISINOPRIL [Concomitant]
     Active Substance: LISINOPRIL
  8. LORAZEPAM [Concomitant]
     Active Substance: LORAZEPAM
  9. METOPROLOL SUCCINATE [Concomitant]
     Active Substance: METOPROLOL SUCCINATE
  10. OLANZAPINE [Concomitant]
     Active Substance: OLANZAPINE
  11. ZOFRAN [Concomitant]
     Active Substance: ONDANSETRON HYDROCHLORIDE
  12. ZONISAMIDE [Concomitant]
     Active Substance: ZONISAMIDE

REACTIONS (4)
  - Gait disturbance [Unknown]
  - Decreased appetite [Unknown]
  - Dizziness [Unknown]
  - Off label use [Unknown]

NARRATIVE: CASE EVENT DATE: 20251201
